FAERS Safety Report 7438383-0 (Version None)
Quarter: 2011Q3

REPORT INFORMATION
  Report Type: 
  Country: None (occurrence: None)
  Receive Date: 20110418
  Receipt Date: 20110411
  Transmission Date: 20111222
  Serious: Yes (Hospitalization)
  Sender: FDA-Public Use
  Company Number: 2011SP016908

PATIENT
  Age: 54 Year
  Sex: Female
  Weight: 100 kg

DRUGS (3)
  1. DESLORATADINE [Concomitant]
  2. INTRAUTERINE DEVICE [Suspect]
  3. DESOGEN [Suspect]
     Indication: PRODUCT USED FOR UNKNOWN INDICATION
     Dosage: ; PO
     Route: 048

REACTIONS (4)
  - BLOOD PRESSURE DECREASED [None]
  - PYREXIA [None]
  - FATIGUE [None]
  - MALAISE [None]
